FAERS Safety Report 25569395 (Version 1)
Quarter: 2025Q3

REPORT INFORMATION
  Report Type: Report from Study
  Country: EG (occurrence: EG)
  Receive Date: 20250716
  Receipt Date: 20250716
  Transmission Date: 20251021
  Serious: Yes (Other)
  Sender: SANDOZ
  Company Number: EG-002147023-NVSC2023EG051812

PATIENT
  Age: 54 Year
  Sex: Female

DRUGS (12)
  1. CALCIUM [Suspect]
     Active Substance: CALCIUM
     Indication: Product used for unknown indication
     Route: 065
  2. COSENTYX [Suspect]
     Active Substance: SECUKINUMAB
     Indication: Ankylosing spondylitis
     Dosage: 1 DOSAGE FORM, QMO START DATE: ??-JAN-2022
     Route: 058
     Dates: end: 202302
  3. HYRIMOZ [Suspect]
     Active Substance: ADALIMUMAB-ADAZ
     Indication: Ankylosing spondylitis
     Route: 058
  4. OMEPRAZOLE [Suspect]
     Active Substance: OMEPRAZOLE
     Indication: Product used for unknown indication
     Route: 065
  5. ERGOCALCIFEROL [Concomitant]
     Active Substance: ERGOCALCIFEROL
     Indication: Product used for unknown indication
     Dosage: 3 DOSAGE FORM, QW (5000)
     Route: 048
     Dates: start: 202205
  6. ERGOCALCIFEROL [Concomitant]
     Active Substance: ERGOCALCIFEROL
     Route: 048
     Dates: end: 202207
  7. Emox [Concomitant]
     Indication: Product used for unknown indication
     Dosage: 2 DOSAGE FORM, BID( 1-2TABLET/ 12 HR)
     Route: 065
     Dates: start: 20230117, end: 20230201
  8. FLAGYL [Concomitant]
     Active Substance: METRONIDAZOLE\METRONIDAZOLE HYDROCHLORIDE
     Indication: Product used for unknown indication
     Dosage: 1 DOSAGE FORM, Q8H (ONE WEEK)
     Route: 065
     Dates: start: 20230117, end: 20230123
  9. Heli cure [Concomitant]
     Indication: Product used for unknown indication
     Dosage: 1 DOSAGE FORM, QD (LATE FOR ONE WEEK)
     Route: 065
     Dates: start: 202210
  10. OMEGA 3 [Concomitant]
     Active Substance: CAPSAICIN
     Indication: Product used for unknown indication
     Route: 048
     Dates: start: 202205, end: 202207
  11. LEVOFLOXACIN [Concomitant]
     Active Substance: LEVOFLOXACIN
     Indication: Product used for unknown indication
     Dosage: 1 DOSAGE FORM, QD (AFTER LUNCH) (750)
     Route: 065
     Dates: start: 202209
  12. LEVOFLOXACIN [Concomitant]
     Active Substance: LEVOFLOXACIN
     Dosage: 1 DOSAGE FORM, QD (AFTER LUNCH) (750)
     Route: 065
     Dates: start: 20230124, end: 20230201

REACTIONS (17)
  - Helicobacter infection [Recovered/Resolved]
  - Ulcer [Recovered/Resolved]
  - Dyspepsia [Recovering/Resolving]
  - Abdominal distension [Recovering/Resolving]
  - Abdominal pain upper [Recovering/Resolving]
  - Nausea [Recovering/Resolving]
  - Haematochezia [Unknown]
  - Haemorrhoids [Unknown]
  - Ankylosing spondylitis [Unknown]
  - Red blood cell sedimentation rate increased [Recovering/Resolving]
  - C-reactive protein increased [Recovering/Resolving]
  - Pain [Not Recovered/Not Resolved]
  - Gastritis [Unknown]
  - Pruritus [Recovered/Resolved]
  - Pyrexia [Unknown]
  - Nasopharyngitis [Unknown]
  - Therapy cessation [Unknown]

NARRATIVE: CASE EVENT DATE: 20220401
